FAERS Safety Report 21386654 (Version 1)
Quarter: 2022Q3

REPORT INFORMATION
  Report Type: Spontaneous
  Country: US (occurrence: None)
  Receive Date: 20220926
  Receipt Date: 20220926
  Transmission Date: 20221027
  Serious: No
  Sender: FDA-Public Use
  Company Number: None

PATIENT
  Age: 69 Year
  Sex: Male
  Weight: 111.13 kg

DRUGS (1)
  1. SKYRIZI [Suspect]
     Active Substance: RISANKIZUMAB-RZAA
     Indication: Psoriasis
     Dosage: INJECTE 150MG (1 SYRINGE) SUBCUTANEOUSLY EVERY 12  WEEKS  AS DIRECTED ?
     Route: 058
     Dates: start: 202110

REACTIONS (1)
  - COVID-19 [None]
